FAERS Safety Report 18932391 (Version 3)
Quarter: 2021Q2

REPORT INFORMATION
  Report Type: Spontaneous
  Country: RU (occurrence: RU)
  Receive Date: 20210223
  Receipt Date: 20210429
  Transmission Date: 20210717
  Serious: Yes (Death, Hospitalization)
  Sender: FDA-Public Use
  Company Number: RU-BIOGEN-2021BI00981897

PATIENT
  Sex: Male
  Weight: 80 kg

DRUGS (1)
  1. PLEGRIDY [Suspect]
     Active Substance: PEGINTERFERON BETA-1A
     Indication: MULTIPLE SCLEROSIS RELAPSE
     Route: 065
     Dates: start: 20201122

REACTIONS (1)
  - Haemorrhagic stroke [Fatal]
